FAERS Safety Report 5961023-4 (Version None)
Quarter: 2008Q4

REPORT INFORMATION
  Report Type: 
  Country: None (occurrence: None)
  Receive Date: 20081121
  Receipt Date: 20080521
  Transmission Date: 20090506
  Serious: No
  Sender: FDA-Public Use
  Company Number: A0729037A

PATIENT
  Age: 68 Year
  Sex: Male

DRUGS (4)
  1. LANOXIN [Suspect]
     Indication: DRUG USE FOR UNKNOWN INDICATION
     Dosage: .125MG PER DAY
     Route: 048
  2. GLYBURIDE [Concomitant]
  3. METFORMIN HCL [Concomitant]
  4. FLOMAX [Concomitant]

REACTIONS (1)
  - ACCIDENTAL OVERDOSE [None]
